FAERS Safety Report 7913348-0 (Version None)
Quarter: 2011Q4

REPORT INFORMATION
  Report Type: 
  Country: None (occurrence: None)
  Receive Date: 20111114
  Receipt Date: 20111109
  Transmission Date: 20120403
  Serious: Yes (Hospitalization)
  Sender: FDA-Public Use
  Company Number: US-GILEAD-2011-0039341

PATIENT
  Age: 36 Year
  Sex: Female

DRUGS (6)
  1. ALUMINUM HYDROXIDE [Concomitant]
     Dates: start: 20110302
  2. MAGNESIUM HYDROXIDE [Concomitant]
     Dates: start: 20110302
  3. EMTRICITABINE/TENOFOVIR DISOPROXIL FUMARATE [Suspect]
     Indication: HIV INFECTION
     Dosage: UNK
     Dates: start: 20100818, end: 20110302
  4. EMTRICITABINE/TENOFOVIR DISOPROXIL FUMARATE [Suspect]
     Dates: start: 20110413
  5. SIMETHICONE [Concomitant]
     Dates: start: 20110302
  6. ACETAMINOPHEN [Concomitant]
     Dates: start: 20110302

REACTIONS (1)
  - ABORTION SPONTANEOUS [None]
